FAERS Safety Report 26143588 (Version 1)
Quarter: 2025Q4

REPORT INFORMATION
  Report Type: Spontaneous
  Country: EU (occurrence: EU)
  Receive Date: 20251211
  Receipt Date: 20251211
  Transmission Date: 20260117
  Serious: Yes (Life-Threatening, Hospitalization, Other)
  Sender: ALEXION PHARMACEUTICALS
  Company Number: None

PATIENT
  Age: 73 Year
  Sex: Male
  Weight: 77 kg

DRUGS (3)
  1. DAPAGLIFLOZIN [Interacting]
     Active Substance: DAPAGLIFLOZIN
     Indication: Cardiac failure
     Dosage: DAPAGLIFOZIN 10 MG 1 CP/DIE, SOSPESO AUTONOMAMENTE
     Dates: start: 202511, end: 20251125
  2. EZETIMIBE\ROSUVASTATIN [Interacting]
     Active Substance: EZETIMIBE\ROSUVASTATIN
     Indication: Arteriosclerosis coronary artery
     Dosage: ROSUVASTATINA/EZETIMIBE 40/10 MG 1 CP/DIE
     Dates: start: 202504, end: 20251127
  3. TAFAMIDIS [Concomitant]
     Active Substance: TAFAMIDIS
     Indication: Acquired ATTR amyloidosis
     Dosage: TAFAMIDIS 61 MG 1 CP/DIE

REACTIONS (4)
  - Rhabdomyolysis [Recovering/Resolving]
  - Myalgia [Recovered/Resolved]
  - Malaise [Recovering/Resolving]
  - Decreased appetite [Recovering/Resolving]

NARRATIVE: CASE EVENT DATE: 20251101
